FAERS Safety Report 23904808 (Version 3)
Quarter: 2024Q3

REPORT INFORMATION
  Report Type: Spontaneous
  Country: GB (occurrence: GB)
  Receive Date: 20240527
  Receipt Date: 20240807
  Transmission Date: 20241016
  Serious: Yes (Life-Threatening, Other)
  Sender: BRISTOL MYERS SQUIBB
  Company Number: GB-BRISTOL-MYERS SQUIBB COMPANY-2024-080629

PATIENT
  Age: 46 Year
  Sex: Male

DRUGS (2)
  1. THALIDOMIDE [Suspect]
     Active Substance: THALIDOMIDE
     Indication: Immune reconstitution inflammatory syndrome
     Dosage: 100MG AT NIGHT
  2. THALIDOMIDE [Suspect]
     Active Substance: THALIDOMIDE
     Indication: Meningitis cryptococcal

REACTIONS (2)
  - Adverse event [Unknown]
  - Off label use [Unknown]
